FAERS Safety Report 21280183 (Version 1)
Quarter: 2022Q3

REPORT INFORMATION
  Report Type: Spontaneous
  Country: US (occurrence: None)
  Receive Date: 20220831
  Receipt Date: 20220831
  Transmission Date: 20221027
  Serious: Yes (Life-Threatening, Hospitalization)
  Sender: FDA-Public Use
  Company Number: None

PATIENT
  Age: 43 Year
  Sex: Female
  Weight: 68.4 kg

DRUGS (2)
  1. ADIPEX-P [Suspect]
     Active Substance: PHENTERMINE HYDROCHLORIDE
     Indication: Weight decreased
     Dosage: FREQUENCY : DAILY;?
     Route: 048
     Dates: end: 20220830
  2. PHENTERMINE [Concomitant]
     Active Substance: PHENTERMINE
     Dates: end: 20220830

REACTIONS (5)
  - Migraine [None]
  - Muscular weakness [None]
  - Hypoaesthesia [None]
  - Carotid artery dissection [None]
  - Carotid artery stenosis [None]

NARRATIVE: CASE EVENT DATE: 20220830
